FAERS Safety Report 11202358 (Version 1)
Quarter: 2015Q2

REPORT INFORMATION
  Report Type: Spontaneous
  Country: ZA (occurrence: ZA)
  Receive Date: 20150619
  Receipt Date: 20150619
  Transmission Date: 20150821
  Serious: Yes (Other)
  Sender: FDA-Public Use
  Company Number: ZA-PFIZER INC-2015191219

PATIENT
  Age: 76 Year
  Sex: Female

DRUGS (6)
  1. LYRICA [Suspect]
     Active Substance: PREGABALIN
     Dosage: 50MG IN THE MORNING, 25MG AT NIGHT
     Dates: start: 20150428, end: 20150428
  2. LYRICA [Suspect]
     Active Substance: PREGABALIN
     Indication: HEADACHE
     Dosage: 50 MG, 2X/DAY (MORNING AND NIGHT)
     Dates: start: 20150408
  3. LYRICA [Suspect]
     Active Substance: PREGABALIN
     Dosage: 25 MG, 1X/DAY
     Dates: start: 20150518, end: 20150521
  4. LYRICA [Suspect]
     Active Substance: PREGABALIN
     Indication: PARAESTHESIA
     Dosage: 50 MG, 3X/DAY
     Dates: start: 20150412
  5. LYRICA [Suspect]
     Active Substance: PREGABALIN
     Dosage: 50 MG, 2X/DAY
     Dates: start: 20150420
  6. LYRICA [Suspect]
     Active Substance: PREGABALIN
     Dosage: 25 MG, MORNING AND NIGHT (2X/DAY)
     Dates: start: 20150429, end: 20150517

REACTIONS (9)
  - Activities of daily living impaired [Unknown]
  - Drug effect delayed [Unknown]
  - Pulmonary function test abnormal [Unknown]
  - Arthralgia [Not Recovered/Not Resolved]
  - Arthropathy [Not Recovered/Not Resolved]
  - Ligament disorder [Unknown]
  - Arthritis [Not Recovered/Not Resolved]
  - Cough [Recovering/Resolving]
  - Gait disturbance [Recovered/Resolved]

NARRATIVE: CASE EVENT DATE: 20150418
